FAERS Safety Report 5588782-7 (Version None)
Quarter: 2008Q1

REPORT INFORMATION
  Report Type: 
  Country: None (occurrence: None)
  Receive Date: 20080111
  Receipt Date: 20080109
  Transmission Date: 20080703
  Serious: Yes (Other)
  Sender: FDA-Public Use
  Company Number: B0502125A

PATIENT
  Age: 44 Year
  Sex: Female

DRUGS (1)
  1. FLUTIDE DISKUS [Suspect]
     Indication: DRUG USE FOR UNKNOWN INDICATION
     Dosage: 200MCG TWICE PER DAY
     Route: 055
     Dates: start: 20071201

REACTIONS (1)
  - HYPOTHYROIDISM [None]
